FAERS Safety Report 4956350-3 (Version None)
Quarter: 2006Q1

REPORT INFORMATION
  Report Type: 
  Country: None (occurrence: None)
  Receive Date: 20060323
  Receipt Date: 20060313
  Transmission Date: 20060701
  Serious: Yes (Hospitalization, Other)
  Sender: FDA-Public Use
  Company Number: 2006008308

PATIENT
  Age: 40 Year
  Sex: Male
  Weight: 100 kg

DRUGS (10)
  1. AZULFIDINE [Suspect]
     Indication: POLYARTHRITIS
     Dates: start: 20050501
  2. METHOTREXATE [Suspect]
     Indication: POLYARTHRITIS
     Dosage: 10 MG (DAILY), ORAL
     Route: 048
     Dates: start: 20050501
  3. PLEON RA (SULFASALAZINE) [Concomitant]
  4. PREDNISOLONE [Concomitant]
  5. ZOVIRAX [Concomitant]
  6. ORFIRIL - SLOW RELEASE ^SESITIN^ (VALPROATE SODIUM) [Concomitant]
  7. MEMANTINE HYDROCHLORIDE (MEMANTINE HYDROCHLORIDE) [Concomitant]
  8. ACERBON (LISINOPRIL) [Concomitant]
  9. NEXIUM [Concomitant]
  10. BELOC-ZOK MITE (METOPROLOL SUCCINATE) [Concomitant]

REACTIONS (13)
  - ACUTE PSYCHOSIS [None]
  - AMNESIA [None]
  - APHASIA [None]
  - BRAIN OEDEMA [None]
  - CEPHALHAEMATOMA [None]
  - CONTUSION [None]
  - CONVULSION [None]
  - DISORIENTATION [None]
  - ELECTROENCEPHALOGRAM ABNORMAL [None]
  - EXTENSOR PLANTAR RESPONSE [None]
  - FALL [None]
  - SKULL FRACTURE [None]
  - SUBARACHNOID HAEMORRHAGE [None]
